FAERS Safety Report 24238990 (Version 1)
Quarter: 2024Q3

REPORT INFORMATION
  Report Type: Spontaneous
  Country: US (occurrence: US)
  Receive Date: 20240822
  Receipt Date: 20240822
  Transmission Date: 20241016
  Serious: Yes (Death)
  Sender: MERCK
  Company Number: US-009507513-2408USA004253

PATIENT
  Sex: Male

DRUGS (1)
  1. BRIDION [Suspect]
     Active Substance: SUGAMMADEX
     Indication: Postoperative care
     Dosage: UNK UNK, ONCE
     Route: 042
     Dates: start: 20240701, end: 20240701

REACTIONS (2)
  - Post procedural haemorrhage [Fatal]
  - Bradycardia [Unknown]

NARRATIVE: CASE EVENT DATE: 20240101
